FAERS Safety Report 5364259-9 (Version None)
Quarter: 2007Q2

REPORT INFORMATION
  Report Type: 
  Country: None (occurrence: None)
  Receive Date: 20070530
  Receipt Date: 20070115
  Transmission Date: 20071010
  Serious: No
  Sender: FDA-Public Use
  Company Number: 2007PV028496

PATIENT
  Age: 67 Year
  Sex: Female
  Weight: 101.6057 kg

DRUGS (8)
  1. BYETTA [Suspect]
     Indication: DIABETES MELLITUS NON-INSULIN-DEPENDENT
     Dosage: 10 MCG;BID;SC ; 5 MCG;QPM;SC ; 10 MCG;QAM;SC ; 5 MCG;BID;SC ; 5 MCG;QD;SC ; 5 MCG;QD;S
     Route: 058
     Dates: start: 20061001, end: 20061001
  2. BYETTA [Suspect]
     Indication: DIABETES MELLITUS NON-INSULIN-DEPENDENT
     Dosage: 10 MCG;BID;SC ; 5 MCG;QPM;SC ; 10 MCG;QAM;SC ; 5 MCG;BID;SC ; 5 MCG;QD;SC ; 5 MCG;QD;S
     Route: 058
     Dates: start: 20061001, end: 20061001
  3. BYETTA [Suspect]
     Indication: DIABETES MELLITUS NON-INSULIN-DEPENDENT
     Dosage: 10 MCG;BID;SC ; 5 MCG;QPM;SC ; 10 MCG;QAM;SC ; 5 MCG;BID;SC ; 5 MCG;QD;SC ; 5 MCG;QD;S
     Route: 058
     Dates: start: 20061001, end: 20061001
  4. BYETTA [Suspect]
     Indication: DIABETES MELLITUS NON-INSULIN-DEPENDENT
     Dosage: 10 MCG;BID;SC ; 5 MCG;QPM;SC ; 10 MCG;QAM;SC ; 5 MCG;BID;SC ; 5 MCG;QD;SC ; 5 MCG;QD;S
     Route: 058
     Dates: start: 20061014, end: 20061001
  5. BYETTA [Suspect]
     Indication: DIABETES MELLITUS NON-INSULIN-DEPENDENT
     Dosage: 10 MCG;BID;SC ; 5 MCG;QPM;SC ; 10 MCG;QAM;SC ; 5 MCG;BID;SC ; 5 MCG;QD;SC ; 5 MCG;QD;S
     Route: 058
     Dates: start: 20060929, end: 20061003
  6. BYETTA [Suspect]
     Indication: DIABETES MELLITUS NON-INSULIN-DEPENDENT
     Dosage: 10 MCG;BID;SC ; 5 MCG;QPM;SC ; 10 MCG;QAM;SC ; 5 MCG;BID;SC ; 5 MCG;QD;SC ; 5 MCG;QD;S
     Route: 058
     Dates: start: 20061001
  7. METFORMIN HCL [Concomitant]
  8. GLUCOTROL [Concomitant]

REACTIONS (3)
  - BLOOD GLUCOSE FLUCTUATION [None]
  - DIARRHOEA [None]
  - NAUSEA [None]
